FAERS Safety Report 8392394-X (Version None)
Quarter: 2012Q2

REPORT INFORMATION
  Report Type: 
  Country: None (occurrence: None)
  Receive Date: 20120529
  Receipt Date: 20120523
  Transmission Date: 20120825
  Serious: Yes (Hospitalization, Other)
  Sender: FDA-Public Use
  Company Number: US-ACTELION-A-NJ2012-61271

PATIENT

DRUGS (4)
  1. VENTAVIS [Suspect]
     Indication: PULMONARY ARTERIAL HYPERTENSION
     Dosage: UNK
     Route: 055
     Dates: start: 20110218
  2. SILDENAFIL [Concomitant]
  3. CALCIUM CHANNEL BLOCKERS [Concomitant]
  4. ASPIRIN [Concomitant]

REACTIONS (4)
  - PRODUCTIVE COUGH [None]
  - BRONCHITIS [None]
  - PNEUMONIA [None]
  - UPPER RESPIRATORY TRACT INFECTION [None]
